FAERS Safety Report 6604125-1 (Version None)
Quarter: 2010Q1

REPORT INFORMATION
  Report Type: 
  Country: None (occurrence: None)
  Receive Date: 20100226
  Receipt Date: 20090615
  Transmission Date: 20100710
  Serious: No
  Sender: FDA-Public Use
  Company Number: A0787716A

PATIENT
  Age: 36 Year
  Sex: Female

DRUGS (2)
  1. LAMICTAL CD [Suspect]
     Indication: BIPOLAR DISORDER
     Dosage: 25MG PER DAY
     Route: 048
     Dates: start: 20090531, end: 20090601
  2. VITAMINS [Concomitant]

REACTIONS (4)
  - EYE DISORDER [None]
  - LYMPHADENOPATHY [None]
  - RASH [None]
  - SENSITIVITY OF TEETH [None]
